FAERS Safety Report 5357015-9 (Version None)
Quarter: 2007Q2

REPORT INFORMATION
  Report Type: 
  Country: None (occurrence: None)
  Receive Date: 20070612
  Receipt Date: 20070612
  Transmission Date: 20071010
  Serious: Yes (Life-Threatening)
  Sender: FDA-Public Use
  Company Number: None

PATIENT
  Age: 85 Year
  Sex: Female
  Weight: 60.782 kg

DRUGS (3)
  1. PRIMAXIN [Suspect]
     Indication: ENTEROBACTER INFECTION
     Dosage: 500MG IV Q8H
     Route: 042
     Dates: start: 20060921, end: 20060928
  2. PRIMAXIN [Suspect]
     Indication: PNEUMONIA
     Dosage: 500MG IV Q8H
     Route: 042
     Dates: start: 20060921, end: 20060928
  3. PRIMAXIN [Suspect]
     Indication: PSEUDOMONAS INFECTION
     Dosage: 500MG IV Q8H
     Route: 042
     Dates: start: 20061011, end: 20061013

REACTIONS (1)
  - CONVULSION [None]
